FAERS Safety Report 21586203 (Version 1)
Quarter: 2022Q4

REPORT INFORMATION
  Report Type: Spontaneous
  Country: US (occurrence: US)
  Receive Date: 20221112
  Receipt Date: 20221112
  Transmission Date: 20230113
  Serious: No
  Sender: FDA-Public Use
  Company Number: US-PADAGIS-2022PAD00893

PATIENT

DRUGS (4)
  1. MUPIROCIN [Suspect]
     Active Substance: MUPIROCIN
     Indication: Cellulitis
     Dosage: USED 6 TIMES; HE USES IT IN THE MORNING AND AT NIGHT
     Route: 065
     Dates: start: 20221023
  2. MUPIROCIN [Suspect]
     Active Substance: MUPIROCIN
     Indication: Lymphoedema
  3. ELIQUIS [Concomitant]
     Active Substance: APIXABAN
     Indication: Product used for unknown indication
     Dosage: UNK
     Route: 065
  4. GABAPENTIN [Concomitant]
     Active Substance: GABAPENTIN
     Indication: Product used for unknown indication
     Dosage: UNK
     Route: 065

REACTIONS (6)
  - Skin haemorrhage [Not Recovered/Not Resolved]
  - Poor quality sleep [Unknown]
  - Pustule [Not Recovered/Not Resolved]
  - Peripheral swelling [Unknown]
  - Dry skin [Unknown]
  - Product use in unapproved indication [Unknown]

NARRATIVE: CASE EVENT DATE: 20221026
